FAERS Safety Report 6142875-4 (Version None)
Quarter: 2009Q2

REPORT INFORMATION
  Report Type: 
  Country: None (occurrence: None)
  Receive Date: 20090403
  Receipt Date: 20090324
  Transmission Date: 20091009
  Serious: Yes (Other)
  Sender: FDA-Public Use
  Company Number: US-PFIZER INC-2009157083

PATIENT
  Sex: Female

DRUGS (6)
  1. DILANTIN-125 [Suspect]
     Indication: CONVULSION
     Dates: start: 19960101
  2. AMIODARONE [Concomitant]
     Dosage: UNK
  3. THYROID TAB [Concomitant]
     Dosage: UNK
  4. DILTIAZEM HYDROCHLORIDE [Concomitant]
     Dosage: UNK
  5. LOPRESSOR [Concomitant]
     Dosage: UNK
  6. DIURETICS [Concomitant]
     Dosage: UNK

REACTIONS (4)
  - ANTICONVULSANT DRUG LEVEL INCREASED [None]
  - BEDRIDDEN [None]
  - DRUG LEVEL INCREASED [None]
  - WEIGHT DECREASED [None]
